FAERS Safety Report 16905897 (Version 3)
Quarter: 2020Q1

REPORT INFORMATION
  Report Type: Spontaneous
  Country: US (occurrence: US)
  Receive Date: 20191010
  Receipt Date: 20200204
  Transmission Date: 20200409
  Serious: No
  Sender: FDA-Public Use
  Company Number: US-AMGEN-USASL2019163263

PATIENT

DRUGS (1)
  1. REPATHA [Suspect]
     Active Substance: EVOLOCUMAB
     Indication: PRODUCT USED FOR UNKNOWN INDICATION
     Dosage: UNK
     Route: 065

REACTIONS (6)
  - Influenza like illness [Unknown]
  - Device defective [Unknown]
  - Blood glucose increased [Unknown]
  - Nasopharyngitis [Unknown]
  - Pain [Unknown]
  - Back pain [Unknown]
